FAERS Safety Report 21137785 (Version 1)
Quarter: 2022Q3

REPORT INFORMATION
  Report Type: Spontaneous
  Country: US (occurrence: US)
  Receive Date: 20220727
  Receipt Date: 20220727
  Transmission Date: 20221027
  Serious: Yes (Hospitalization, Other)
  Sender: FDA-Public Use
  Company Number: US-PFIZER INC-202201006091

PATIENT
  Age: 81 Year
  Sex: Male
  Weight: 63.5 kg

DRUGS (2)
  1. VYNDAMAX [Suspect]
     Active Substance: TAFAMIDIS
     Indication: Cardiomyopathy
     Dosage: 61 MG, DAILY
     Route: 048
  2. VYNDAMAX [Suspect]
     Active Substance: TAFAMIDIS
     Indication: Cardiac failure

REACTIONS (5)
  - Musculoskeletal chest pain [Unknown]
  - Rib fracture [Unknown]
  - Fall [Unknown]
  - Gastrostomy [Unknown]
  - Off label use [Unknown]

NARRATIVE: CASE EVENT DATE: 20220703
